FAERS Safety Report 6006838-1 (Version None)
Quarter: 2008Q4

REPORT INFORMATION
  Report Type: 
  Country: None (occurrence: None)
  Receive Date: 20081217
  Receipt Date: 20071025
  Transmission Date: 20090506
  Serious: No
  Sender: FDA-Public Use
  Company Number: US-ASTRAZENECA-2007UW24789

PATIENT
  Age: 67 Year
  Sex: Female
  Weight: 67.1 kg

DRUGS (6)
  1. CRESTOR [Suspect]
     Route: 048
     Dates: start: 20070901
  2. FOSAMAX [Concomitant]
  3. VITAMINS [Concomitant]
  4. CALCIUM [Concomitant]
  5. COLOSTRUM [Concomitant]
  6. NONIE JUICE [Concomitant]

REACTIONS (2)
  - MYALGIA [None]
  - POLLAKIURIA [None]
